FAERS Safety Report 24108729 (Version 1)
Quarter: 2024Q3

REPORT INFORMATION
  Report Type: Spontaneous
  Country: DE (occurrence: DE)
  Receive Date: 20240718
  Receipt Date: 20240718
  Transmission Date: 20241016
  Serious: Yes (Other)
  Sender: RANBAXY
  Company Number: DE-SUN PHARMACEUTICAL INDUSTRIES LTD-2024RR-457230

PATIENT
  Sex: Male
  Weight: 70 kg

DRUGS (3)
  1. LEVETIRACETAM [Suspect]
     Active Substance: LEVETIRACETAM
     Indication: Epilepsy
     Dosage: 1000 MILLIGRAM, BID
     Route: 065
     Dates: start: 202312
  2. VALPROATE [Suspect]
     Active Substance: VALPROIC ACID
     Indication: Epilepsy
     Dosage: 800 MILLIGRAM, BID
     Route: 065
     Dates: start: 2019
  3. BILASTINE [Suspect]
     Active Substance: BILASTINE
     Indication: Hypersensitivity
     Dosage: 20 MILLIGRAM, QD
     Route: 065
     Dates: start: 20240610, end: 20240627

REACTIONS (2)
  - Constipation [Unknown]
  - Seizure [Unknown]

NARRATIVE: CASE EVENT DATE: 20240610
